FAERS Safety Report 5146028-8 (Version None)
Quarter: 2006Q4

REPORT INFORMATION
  Report Type: 
  Country: None (occurrence: None)
  Receive Date: 20061108
  Receipt Date: 20050516
  Transmission Date: 20070319
  Serious: Yes (Hospitalization)
  Sender: FDA-Public Use
  Company Number: US-GLAXOSMITHKLINE-A0559043A

PATIENT
  Sex: Female
  Weight: 105.9 kg

DRUGS (9)
  1. PAXIL [Suspect]
     Indication: DEPRESSION
     Route: 048
     Dates: start: 19930101
  2. PAXIL CR [Suspect]
     Indication: DEPRESSION
     Route: 048
  3. HYZAAR [Concomitant]
  4. LANTUS [Concomitant]
  5. LEVOXYL [Concomitant]
  6. OXYGEN [Concomitant]
  7. GLUCOTROL [Concomitant]
  8. CELEBREX [Concomitant]
  9. ADVAIR DISKUS 100/50 [Concomitant]

REACTIONS (8)
  - ABNORMAL DREAMS [None]
  - DEPRESSION [None]
  - DIZZINESS [None]
  - DRUG WITHDRAWAL SYNDROME [None]
  - FATIGUE [None]
  - HALLUCINATION [None]
  - NERVOUSNESS [None]
  - SUICIDAL IDEATION [None]
